FAERS Safety Report 16794678 (Version 1)
Quarter: 2019Q3

REPORT INFORMATION
  Report Type: Spontaneous
  Country: US (occurrence: US)
  Receive Date: 20190911
  Receipt Date: 20190911
  Transmission Date: 20191005
  Serious: Yes (Death, Life-Threatening, Hospitalization)
  Sender: FDA-Public Use
  Company Number: US-STRIDES ARCOLAB LIMITED-2019SP008476

PATIENT
  Age: 41 Year
  Sex: Female

DRUGS (3)
  1. IBUPROFEN. [Suspect]
     Active Substance: IBUPROFEN
     Indication: PRODUCT USED FOR UNKNOWN INDICATION
     Dosage: UNK
     Route: 048
  2. FERROUS GLUCONATE [Suspect]
     Active Substance: FERROUS GLUCONATE
     Indication: PRODUCT USED FOR UNKNOWN INDICATION
     Dosage: UNK, TABLET
     Route: 048
  3. DIPHENHYDRAMINE. [Suspect]
     Active Substance: DIPHENHYDRAMINE
     Indication: PRODUCT USED FOR UNKNOWN INDICATION
     Dosage: UNK
     Route: 048

REACTIONS (13)
  - Multiple organ dysfunction syndrome [Fatal]
  - Hypotension [Unknown]
  - Tachycardia [Unknown]
  - Condition aggravated [Unknown]
  - Toxicity to various agents [Unknown]
  - Intentional overdose [Fatal]
  - Acute respiratory distress syndrome [Unknown]
  - Hypoxia [Unknown]
  - Completed suicide [Fatal]
  - Shock [Unknown]
  - Hepatic failure [Unknown]
  - Disseminated intravascular coagulation [Unknown]
  - Lethargy [Unknown]
